FAERS Safety Report 4785349-5 (Version None)
Quarter: 2005Q3

REPORT INFORMATION
  Report Type: 
  Country: None (occurrence: None)
  Receive Date: 20050929
  Receipt Date: 20050915
  Transmission Date: 20060218
  Serious: Yes (Hospitalization)
  Sender: FDA-Public Use
  Company Number: 2005S1009055

PATIENT
  Age: 65 Year
  Sex: Female

DRUGS (11)
  1. APOMORPHINE HYDROCHLORIDE (APOMORPHINE HYDROCHLORIDE) (10 MG/ ML) [Suspect]
     Indication: PARKINSON'S DISEASE
     Dosage: 6 MG/HR, SC
     Route: 058
     Dates: start: 20050123, end: 20050905
  2. LEVODOPA/BENSERAZIDE [Concomitant]
  3. HYDROCHLORIDE [Concomitant]
  4. CARBIDOPA AND LEVODOPA [Concomitant]
  5. ENTACAPONE [Concomitant]
  6. PRAMIPEXOLE [Concomitant]
  7. DIHYDROCHLORIDE [Concomitant]
  8. AMANTIDINE HEMISULPHATE [Concomitant]
  9. TILIDINE HYDROCHLORIDE [Concomitant]
  10. CLONAZEPAM [Concomitant]
  11. DOMPERIDONE [Concomitant]

REACTIONS (1)
  - HAEMOLYTIC ANAEMIA [None]
